FAERS Safety Report 15330555 (Version 1)
Quarter: 2018Q3

REPORT INFORMATION
  Report Type: Spontaneous
  Country: US (occurrence: US)
  Receive Date: 20180824
  Receipt Date: 20180824
  Transmission Date: 20181010
  Serious: Yes (Other)
  Sender: FDA-Public Use
  Company Number: None

PATIENT
  Age: 27 Year
  Sex: Female
  Weight: 65.25 kg

DRUGS (2)
  1. PREDNISONE 20MG TABLETS [Suspect]
     Active Substance: PREDNISONE
     Indication: JOINT SWELLING
     Dosage: ?          QUANTITY:2 TABLET(S);?
     Route: 048
     Dates: start: 20180824, end: 20180824
  2. CYCLOBENZAPINE [Concomitant]

REACTIONS (3)
  - Tremor [None]
  - Heart rate increased [None]
  - Hyperhidrosis [None]

NARRATIVE: CASE EVENT DATE: 20180824
